FAERS Safety Report 7166781-1 (Version None)
Quarter: 2010Q4

REPORT INFORMATION
  Report Type: 
  Country: None (occurrence: None)
  Receive Date: 20101216
  Receipt Date: 20101206
  Transmission Date: 20110411
  Serious: Yes (Other)
  Sender: FDA-Public Use
  Company Number: US-ROCHE-747151

PATIENT
  Age: 61 Year
  Sex: Male

DRUGS (6)
  1. FUZEON [Suspect]
     Route: 065
  2. VIDEX [Concomitant]
  3. ABACAVIR [Concomitant]
  4. LAMIVUDINE [Concomitant]
  5. TIPRANAVIR [Concomitant]
  6. RITONAVIR [Concomitant]

REACTIONS (3)
  - DEPRESSION [None]
  - GRANULOMA [None]
  - WEIGHT DECREASED [None]
